FAERS Safety Report 5694832-X (Version None)
Quarter: 2008Q2

REPORT INFORMATION
  Report Type: 
  Country: None (occurrence: None)
  Receive Date: 20080404
  Receipt Date: 20080327
  Transmission Date: 20081010
  Serious: Yes (Hospitalization)
  Sender: FDA-Public Use
  Company Number: US-AVENTIS-200812843GDDC

PATIENT
  Age: 49 Year
  Sex: Male
  Weight: 109.77 kg

DRUGS (9)
  1. DOCETAXEL [Suspect]
     Route: 042
     Dates: start: 20080310, end: 20080310
  2. CISPLATIN [Suspect]
     Route: 042
     Dates: start: 20080310, end: 20080310
  3. FLUOROURACIL [Suspect]
     Dosage: DOSE: 1000MG/DAY X 4 DAYS; FREQUENCY: CONTINUOUS
     Route: 042
     Dates: start: 20080310, end: 20080314
  4. RADIATION THERAPY [Suspect]
     Dosage: DOSE: UNK
  5. LOTREL                             /01289101/ [Concomitant]
     Dosage: DOSE: 5/20 MG
  6. HYDROCHLOROTHIAZIDE [Concomitant]
     Dosage: DOSE: UNK
  7. XANAX [Concomitant]
     Dosage: DOSE: 1 MG TWICE A DAY
  8. KYTRIL                             /01178101/ [Concomitant]
  9. DECADRON [Concomitant]

REACTIONS (3)
  - CONFUSIONAL STATE [None]
  - HALLUCINATION [None]
  - MEMORY IMPAIRMENT [None]
